FAERS Safety Report 25670490 (Version 2)
Quarter: 2025Q4

REPORT INFORMATION
  Report Type: Spontaneous
  Country: EU (occurrence: EU)
  Receive Date: 20250812
  Receipt Date: 20251022
  Transmission Date: 20260117
  Serious: Yes (Life-Threatening, Hospitalization, Other)
  Sender: AUROBINDO
  Company Number: EU-AEMPS-1737234

PATIENT
  Age: 74 Year
  Sex: Female
  Weight: 41 kg

DRUGS (4)
  1. OXALIPLATIN [Interacting]
     Active Substance: OXALIPLATIN
     Indication: Adenocarcinoma gastric
     Dosage: UNK
     Route: 042
     Dates: start: 20250416
  2. DOCETAXEL [Interacting]
     Active Substance: DOCETAXEL
     Indication: Adenocarcinoma gastric
     Dosage: UNK
     Route: 042
     Dates: start: 20250416, end: 20250528
  3. FLUOROURACIL [Interacting]
     Active Substance: FLUOROURACIL
     Indication: Adenocarcinoma gastric
     Dosage: UNK
     Route: 042
     Dates: start: 20250416
  4. LEUCOVORIN [Concomitant]
     Active Substance: LEUCOVORIN\LEUCOVORIN CALCIUM
     Indication: Adenocarcinoma gastric
     Dosage: UNK
     Route: 042
     Dates: start: 20250416

REACTIONS (3)
  - Septic shock [Recovered/Resolved]
  - Pseudomembranous colitis [Recovered/Resolved]
  - Clostridium difficile infection [Recovered/Resolved]

NARRATIVE: CASE EVENT DATE: 20250530
